FAERS Safety Report 8918942 (Version 1)
Quarter: 2012Q4

REPORT INFORMATION
  Report Type: Report from Study
  Country: IT (occurrence: IT)
  Receive Date: 20121121
  Receipt Date: 20121121
  Transmission Date: 20130627
  Serious: Yes (Hospitalization)
  Sender: FDA-Public Use
  Company Number: IT-ASTRAZENECA-2010SE59703

PATIENT
  Sex: Female
  Weight: 60 kg

DRUGS (4)
  1. ZD6474 [Suspect]
     Indication: MALIGNANT HEPATOBILIARY NEOPLASM
     Route: 048
     Dates: start: 20100323, end: 20101025
  2. GEMCITABINE [Suspect]
     Indication: MALIGNANT HEPATOBILIARY NEOPLASM
     Dosage: 1000 mg/m2 over 30 minutes on Days 1 and 8 of each 21-day cycle
     Route: 042
     Dates: start: 20100323
  3. NAPRILENE [Concomitant]
     Indication: HYPERTENSION
     Route: 048
     Dates: start: 2000
  4. MEPRAL [Concomitant]
     Indication: PROPHYLAXIS AGAINST GASTROINTESTINAL ULCER
     Route: 048
     Dates: start: 20100323

REACTIONS (3)
  - Dyspnoea [Recovered/Resolved]
  - Pulmonary hypertension [Recovered/Resolved]
  - Blood bilirubin increased [None]
